FAERS Safety Report 7108763-1 (Version None)
Quarter: 2010Q4

REPORT INFORMATION
  Report Type: 
  Country: None (occurrence: None)
  Receive Date: 20101112
  Receipt Date: 20101026
  Transmission Date: 20110411
  Serious: Yes (Other)
  Sender: FDA-Public Use
  Company Number: 2010004530

PATIENT
  Age: 62 Year
  Sex: Male
  Weight: 62.1 kg

DRUGS (8)
  1. ERLOTINIB (TABLET) [Suspect]
     Indication: LUNG ADENOCARCINOMA
     Dosage: 150 MG, QD, ORAL
     Route: 048
     Dates: start: 20090129, end: 20100715
  2. DEPAKENE [Concomitant]
  3. CLOBAZAM [Concomitant]
  4. ASPIRIN [Concomitant]
  5. LIPITOR [Concomitant]
  6. PANTOSIN (PANTETHINE) [Concomitant]
  7. MAGNESIUM OXIDE [Concomitant]
  8. ARICEPT [Concomitant]

REACTIONS (4)
  - DEMENTIA [None]
  - DIARRHOEA [None]
  - DRY SKIN [None]
  - RASH [None]
